FAERS Safety Report 19221810 (Version 1)
Quarter: 2021Q2

REPORT INFORMATION
  Report Type: Spontaneous
  Country: JP (occurrence: JP)
  Receive Date: 20210505
  Receipt Date: 20210505
  Transmission Date: 20210717
  Serious: Yes (Death)
  Sender: FDA-Public Use
  Company Number: JP-ALLERGAN-2117202US

PATIENT
  Sex: Male

DRUGS (3)
  1. ASENAPINE MALEATE ? BP [Suspect]
     Active Substance: ASENAPINE MALEATE
     Indication: CEREBRAL DISORDER
     Dosage: 2.5 MG, PRN
     Route: 060
  2. LEMBOREXANT [Concomitant]
     Active Substance: LEMBOREXANT
  3. OLANZAPINE. [Concomitant]
     Active Substance: OLANZAPINE

REACTIONS (2)
  - Pneumonia aspiration [Fatal]
  - Off label use [Unknown]
